FAERS Safety Report 4774840-3 (Version None)
Quarter: 2005Q3

REPORT INFORMATION
  Report Type: 
  Country: None (occurrence: None)
  Receive Date: 20050921
  Receipt Date: 20050720
  Transmission Date: 20060218
  Serious: Yes (Death)
  Sender: FDA-Public Use
  Company Number: 200512003EU

PATIENT
  Sex: Male

DRUGS (11)
  1. FUROSEMIDE [Suspect]
     Route: 048
  2. ALLOPURINOL [Suspect]
     Route: 048
  3. SPIRIVA [Suspect]
     Route: 055
  4. DIGOXIN [Suspect]
     Route: 048
  5. PANTOPRAZOLE [Suspect]
     Route: 048
  6. SIMVASTATIN [Suspect]
     Route: 048
  7. WARFARIN SODIUM [Suspect]
     Route: 048
  8. BECLOMETHASONE DIPROPIONATE [Suspect]
  9. VENTOLIN [Suspect]
     Route: 055
  10. PARACETAMOL [Suspect]
     Route: 048
  11. COVERSYL [Suspect]
     Route: 048

REACTIONS (1)
  - AORTIC DISSECTION [None]
